FAERS Safety Report 5102589-6 (Version None)
Quarter: 2006Q3

REPORT INFORMATION
  Report Type: 
  Country: None (occurrence: None)
  Receive Date: 20060907
  Receipt Date: 20060823
  Transmission Date: 20061208
  Serious: Yes (Hospitalization)
  Sender: FDA-Public Use
  Company Number: 147204USA

PATIENT
  Age: 25 Year
  Sex: Male

DRUGS (3)
  1. PHENYTOIN [Suspect]
     Indication: EPILEPSY
     Dosage: 450 MILLIGRAM DAILY
  2. CLOBAZAM [Suspect]
     Dosage: 5 MILLIGRAM DAILY
  3. ETHOSUXIMIDE [Suspect]
     Indication: EPILEPSY

REACTIONS (19)
  - ABASIA [None]
  - ANGIOPATHY [None]
  - ANTICONVULSANT DRUG LEVEL INCREASED [None]
  - BLOOD IMMUNOGLOBULIN E INCREASED [None]
  - CEREBELLAR ATROPHY [None]
  - CEREBRAL ARTERY STENOSIS [None]
  - CEREBRAL ATROPHY [None]
  - COORDINATION ABNORMAL [None]
  - CSF PROTEIN DECREASED [None]
  - DRUG TOXICITY [None]
  - ELECTROENCEPHALOGRAM ABNORMAL [None]
  - FACIAL PALSY [None]
  - HEMIPLEGIA [None]
  - HYPERREFLEXIA [None]
  - INTENTION TREMOR [None]
  - MUSCULAR WEAKNESS [None]
  - MYOCLONIC EPILEPSY [None]
  - NYSTAGMUS [None]
  - PARAESTHESIA [None]
